FAERS Safety Report 19809539 (Version 1)
Quarter: 2021Q3

REPORT INFORMATION
  Report Type: Spontaneous
  Country: US (occurrence: US)
  Receive Date: 20210908
  Receipt Date: 20210908
  Transmission Date: 20211014
  Serious: No
  Sender: FDA-Public Use
  Company Number: US-ROCHE-2839447

PATIENT
  Age: 64 Year
  Sex: Male

DRUGS (2)
  1. ALECENSA [Suspect]
     Active Substance: ALECTINIB HYDROCHLORIDE
     Indication: PRODUCT USED FOR UNKNOWN INDICATION
     Route: 065
  2. GABAPENTIN. [Concomitant]
     Active Substance: GABAPENTIN

REACTIONS (4)
  - Product dosage form issue [Unknown]
  - No adverse event [Unknown]
  - Product size issue [Unknown]
  - Wrong product administered [Unknown]

NARRATIVE: CASE EVENT DATE: 20210526
